FAERS Safety Report 24135659 (Version 2)
Quarter: 2024Q3

REPORT INFORMATION
  Report Type: Other
  Country: SI (occurrence: SI)
  Receive Date: 20240725
  Receipt Date: 20240805
  Transmission Date: 20241016
  Serious: Yes (Death, Other)
  Sender: ARGENX BVBA
  Company Number: None

PATIENT

DRUGS (15)
  1. VYVGART [Suspect]
     Active Substance: EFGARTIGIMOD ALFA-FCAB
     Indication: Myasthenia gravis
     Dosage: STRENGHT: 20 MG/MLDOSE: 610MG 1X/WEEK
     Route: 042
     Dates: start: 20240223
  2. ATORVASTATIN [Concomitant]
     Active Substance: ATORVASTATIN
     Indication: Hyperlipidaemia
     Dosage: 40.000MG
     Route: 048
  3. MEDROL [Concomitant]
     Active Substance: METHYLPREDNISOLONE
     Indication: Myasthenia gravis
     Dosage: 16.000MG
     Route: 048
  4. METRONIDAZOLE [Concomitant]
     Active Substance: METRONIDAZOLE
     Indication: Retroperitoneal abscess
     Dosage: 400.000MG TID
     Route: 048
     Dates: start: 20240405, end: 20240626
  5. VESICARE [Concomitant]
     Active Substance: SOLIFENACIN SUCCINATE
     Indication: Urge incontinence
     Dosage: 5.000MG
     Route: 048
  6. Ultop [Concomitant]
     Indication: Gastrointestinal disorder prophylaxis
     Dosage: 40.000MG
     Route: 048
  7. SULFAMETHOXAZOLE\TRIMETHOPRIM [Concomitant]
     Active Substance: SULFAMETHOXAZOLE\TRIMETHOPRIM
     Indication: Infection prophylaxis
     Dosage: STRENGHT: 80 MG/400 MG
     Route: 048
  8. QUETIAPINE FUMARATE [Concomitant]
     Active Substance: QUETIAPINE FUMARATE
     Indication: Insomnia
     Dosage: 25.000MG
     Route: 048
  9. Magnesol [Concomitant]
     Indication: Muscle spasms
     Dosage: STRENGHT:150 MG
     Route: 048
  10. CEFUROXIME [Concomitant]
     Active Substance: CEFUROXIME
     Indication: Retroperitoneal abscess
     Dosage: 500MG/12H
     Route: 048
     Dates: start: 20240405, end: 20240626
  11. KALCIJEV KARBONAT KRKA [Concomitant]
     Indication: Osteoporosis prophylaxis
     Dosage: 1.000G
     Route: 048
  12. ACETAMINOPHEN [Concomitant]
     Active Substance: ACETAMINOPHEN
     Indication: Pain
     Dosage: 500.
     Route: 048
  13. LACTOBACILLUS ACIDOPHILUS [Concomitant]
     Active Substance: LACTOBACILLUS ACIDOPHILUS
     Dosage: 3X1 CAPS
     Route: 065
  14. MYTELASE [Concomitant]
     Active Substance: AMBENONIUM CHLORIDE
     Indication: Hyperlipidaemia
     Dosage: IN THE MORNING, NOON AND EVENING
     Route: 048
  15. VITAMIN D3 [Concomitant]
     Active Substance: CHOLECALCIFEROL
     Indication: Restlessness
     Dosage: 35 GTT ON WEDNESDAYS AND SUNDAYS
     Route: 048

REACTIONS (4)
  - Immune system disorder [Fatal]
  - Septic shock [Fatal]
  - Respiratory failure [Fatal]
  - Multiple organ dysfunction syndrome [Fatal]

NARRATIVE: CASE EVENT DATE: 20240627
